FAERS Safety Report 8573435-3 (Version None)
Quarter: 2012Q3

REPORT INFORMATION
  Report Type: 
  Country: None (occurrence: None)
  Receive Date: 20120806
  Receipt Date: 20120803
  Transmission Date: 20120928
  Serious: Yes (Other)
  Sender: FDA-Public Use
  Company Number: US-PFIZER INC-2012189450

PATIENT
  Age: 57 Year
  Sex: Male
  Weight: 81.633 kg

DRUGS (1)
  1. PREPARATION H HEMORRHOIDAL SUPPOSITORIES [Suspect]
     Indication: HAEMORRHOIDS
     Dosage: UNK, AS NEEDED
     Route: 054
     Dates: start: 20110101

REACTIONS (5)
  - INCORRECT STORAGE OF DRUG [None]
  - INFLUENZA [None]
  - CONSTIPATION [None]
  - DIARRHOEA [None]
  - HAEMORRHOIDAL HAEMORRHAGE [None]
